FAERS Safety Report 4940631-3 (Version None)
Quarter: 2006Q1

REPORT INFORMATION
  Report Type: 
  Country: None (occurrence: None)
  Receive Date: 20060206
  Receipt Date: 20050824
  Transmission Date: 20060701
  Serious: Yes (Hospitalization)
  Sender: FDA-Public Use
  Company Number: MEDI-0003622

PATIENT
  Age: 47 Year
  Sex: Male
  Weight: 69.8539 kg

DRUGS (7)
  1. ETHYOL [Suspect]
     Indication: RADIOTHERAPY
     Dosage: 400 MG, SUBCUTANEOUS
     Route: 058
     Dates: start: 20050314, end: 20050413
  2. HYDROCODONE BITARTRATE [Concomitant]
  3. ZOLOFT [Concomitant]
  4. ATIVAN [Concomitant]
  5. ENBREL [Concomitant]
  6. FENTANYL [Concomitant]
  7. ENSURE (VITAMINS NOS, MINERALS NOS, AMINO ACIDS NOS) [Concomitant]

REACTIONS (3)
  - CHILLS [None]
  - HYPOTENSION [None]
  - PYREXIA [None]
